FAERS Safety Report 6153386-4 (Version None)
Quarter: 2009Q2

REPORT INFORMATION
  Report Type: 
  Country: None (occurrence: None)
  Receive Date: 20090409
  Receipt Date: 20090409
  Transmission Date: 20091009
  Serious: Yes (Other)
  Sender: FDA-Public Use
  Company Number: None

PATIENT
  Age: 60 Year
  Sex: Female
  Weight: 86.1834 kg

DRUGS (6)
  1. CIPROFLOXACIN 500 MG 1 @ 10 HRS PO [Suspect]
     Indication: URINARY INCONTINENCE
     Route: 048
     Dates: start: 20090320
  2. BACTRIM [Suspect]
     Dosage: 100 MG 3X 24 HRS PO
     Route: 048
     Dates: start: 20090212
  3. CEPHLEXIN [Suspect]
     Indication: ARTHROPOD BITE
     Dosage: 500 MG @ 8 HRS PO
     Route: 048
     Dates: start: 20090219
  4. BEXTRA [Concomitant]
  5. TYLENOL [Concomitant]
  6. VICADIN [Concomitant]

REACTIONS (7)
  - ANOREXIA [None]
  - DIZZINESS [None]
  - FUNGAL INFECTION [None]
  - MUSCULAR WEAKNESS [None]
  - PYREXIA [None]
  - RASH [None]
  - VISION BLURRED [None]
